FAERS Safety Report 4280103-5 (Version None)
Quarter: 2004Q1

REPORT INFORMATION
  Report Type: 
  Country: None (occurrence: None)
  Receive Date: 20040126
  Receipt Date: 20040116
  Transmission Date: 20041129
  Serious: Yes (Disabling)
  Sender: FDA-Public Use
  Company Number: 2004CG00126

PATIENT

DRUGS (1)
  1. XYLOCAINE [Suspect]
     Indication: ANAESTHESIA
     Dosage: NI

REACTIONS (3)
  - ENDOPHTHALMITIS [None]
  - MEDICATION ERROR [None]
  - VISUAL ACUITY REDUCED [None]
